FAERS Safety Report 6427490-7 (Version None)
Quarter: 2009Q4

REPORT INFORMATION
  Report Type: 
  Country: None (occurrence: None)
  Receive Date: 20091104
  Receipt Date: 20091022
  Transmission Date: 20100525
  Serious: Yes (Other)
  Sender: FDA-Public Use
  Company Number: PHHY2009FR46086

PATIENT
  Age: 70 Year
  Sex: Male

DRUGS (3)
  1. RASILEZ [Suspect]
     Dosage: 150 MG, QD
  2. INSULIN [Concomitant]
     Indication: DIABETES MELLITUS
     Dosage: UNK
  3. COVERSYL [Concomitant]
     Indication: COUGH
     Dosage: UNK

REACTIONS (2)
  - HYPOGLYCAEMIA [None]
  - POLLAKIURIA [None]
